FAERS Safety Report 12111516 (Version 1)
Quarter: 2016Q1

REPORT INFORMATION
  Report Type: Spontaneous
  Country: US (occurrence: US)
  Receive Date: 20160224
  Receipt Date: 20160224
  Transmission Date: 20160526
  Serious: No
  Sender: FDA-Public Use
  Company Number: US-JAZZ-2015-US-015215

PATIENT
  Age: 23 Year
  Sex: Female

DRUGS (5)
  1. PRIALT [Suspect]
     Active Substance: ZICONOTIDE ACETATE
     Indication: PAIN
     Dosage: 0.049 ?G, QH
     Route: 037
     Dates: start: 20150819, end: 20150909
  2. DILAUDID [Suspect]
     Active Substance: HYDROMORPHONE HYDROCHLORIDE
     Indication: PAIN
     Dosage: UNK MG, QH
     Route: 037
     Dates: end: 20150819
  3. CLONIDINE. [Suspect]
     Active Substance: CLONIDINE
     Dosage: 8.656 ?G, QH
     Dates: start: 20150819
  4. CLONIDINE. [Suspect]
     Active Substance: CLONIDINE
     Indication: PAIN
     Dosage: UNK ?G, QH
     Dates: end: 20150819
  5. DILAUDID [Suspect]
     Active Substance: HYDROMORPHONE HYDROCHLORIDE
     Dosage: 0.108 MG, QH
     Route: 037
     Dates: start: 20150819

REACTIONS (4)
  - Headache [Recovered/Resolved]
  - Tinnitus [Recovered/Resolved]
  - Dizziness postural [Recovered/Resolved]
  - Abnormal dreams [Recovered/Resolved]

NARRATIVE: CASE EVENT DATE: 201509
